FAERS Safety Report 5201061-2 (Version None)
Quarter: 2007Q1

REPORT INFORMATION
  Report Type: 
  Country: None (occurrence: None)
  Receive Date: 20070108
  Receipt Date: 20061226
  Transmission Date: 20070707
  Serious: Yes (Death, Other)
  Sender: FDA-Public Use
  Company Number: PHHO2006JP22107

PATIENT
  Age: 73 Year
  Sex: Male

DRUGS (5)
  1. BETAMETHASONE SODIUM PHOSPHATE [Concomitant]
     Indication: LUNG NEOPLASM MALIGNANT
     Dosage: 1 MG, UNK
     Route: 048
     Dates: start: 20060919
  2. PROTECADIN [Concomitant]
     Indication: PROPHYLAXIS
     Dosage: 10 MG, UNK
     Route: 048
     Dates: start: 20060919
  3. ETOPAN [Concomitant]
     Indication: CANCER PAIN
     Dosage: 400 MG, UNK
     Route: 048
     Dates: start: 20060925
  4. ZOMETA [Suspect]
     Indication: HYPERCALCAEMIA OF MALIGNANCY
     Dosage: 4 MG, UNK
     Route: 042
     Dates: start: 20061006
  5. NIKORANMART [Concomitant]
     Indication: ANGINA PECTORIS
     Dosage: 15 MG, UNK
     Route: 048
     Dates: start: 20060925

REACTIONS (2)
  - DEATH [None]
  - RESPIRATORY DISORDER [None]
